FAERS Safety Report 19598504 (Version 1)
Quarter: 2021Q3

REPORT INFORMATION
  Report Type: Spontaneous
  Country: UA (occurrence: UA)
  Receive Date: 20210723
  Receipt Date: 20210723
  Transmission Date: 20211014
  Serious: Yes (Other)
  Sender: FDA-Public Use
  Company Number: NVSC2021UA139391

PATIENT
  Sex: Male

DRUGS (4)
  1. TOPIRAMATE. [Concomitant]
     Active Substance: TOPIRAMATE
     Indication: PRODUCT USED FOR UNKNOWN INDICATION
     Dosage: UNK
     Route: 065
  2. CARBAMAZEPINE. [Suspect]
     Active Substance: CARBAMAZEPINE
     Indication: EPILEPTIC ENCEPHALOPATHY
     Dosage: UNK
     Route: 065
  3. PHENOBARBITAL. [Suspect]
     Active Substance: PHENOBARBITAL
     Indication: EPILEPTIC ENCEPHALOPATHY
     Dosage: UNK
     Route: 065
  4. PHENYTOIN. [Suspect]
     Active Substance: PHENYTOIN
     Indication: EPILEPTIC ENCEPHALOPATHY
     Dosage: UNK
     Route: 065

REACTIONS (4)
  - Therapy partial responder [Unknown]
  - Delirium [Unknown]
  - Cognitive disorder [Unknown]
  - Confusional state [Unknown]
